FAERS Safety Report 7557988-X (Version None)
Quarter: 2011Q2

REPORT INFORMATION
  Report Type: 
  Country: None (occurrence: None)
  Receive Date: 20110613
  Receipt Date: 20110602
  Transmission Date: 20111010
  Serious: Yes (Other)
  Sender: FDA-Public Use
  Company Number: 2011SP021272

PATIENT
  Sex: Female

DRUGS (1)
  1. PEGATRON (PEGYLATED INTERFERON ALFA-2B W/RIBAVIRIN) [Suspect]
     Indication: HEPATITIS C
     Dates: start: 20110411

REACTIONS (8)
  - INFLUENZA LIKE ILLNESS [None]
  - AFFECTIVE DISORDER [None]
  - ANAEMIA [None]
  - INFLAMMATION [None]
  - LIVER DISORDER [None]
  - COGNITIVE DISORDER [None]
  - ABDOMINAL PAIN [None]
  - LIVER FUNCTION TEST ABNORMAL [None]
